FAERS Safety Report 9281130 (Version 6)
Quarter: 2013Q4

REPORT INFORMATION
  Report Type: Spontaneous
  Country: US (occurrence: US)
  Receive Date: 20130509
  Receipt Date: 20131021
  Transmission Date: 20140711
  Serious: Yes (Other)
  Sender: FDA-Public Use
  Company Number: US-JNJFOC-20130503901

PATIENT
  Age: 24 Year
  Sex: Female

DRUGS (9)
  1. TOPAMAX [Suspect]
     Indication: BIPOLAR DISORDER
     Route: 048
  2. TOPAMAX [Suspect]
     Indication: BIPOLAR DISORDER
     Route: 048
     Dates: start: 200704, end: 200706
  3. TOPAMAX [Suspect]
     Indication: MIGRAINE
     Route: 048
     Dates: start: 200704, end: 200706
  4. TOPAMAX [Suspect]
     Indication: MIGRAINE
     Route: 048
  5. VICODIN [Suspect]
     Indication: HEADACHE
     Dosage: 5/325 MG AND 75/325 MG
     Route: 065
  6. VICODIN [Suspect]
     Indication: BACK DISORDER
     Dosage: 5/325 MG AND 75/325 MG
     Route: 065
  7. VICODIN [Suspect]
     Indication: INJURY
     Dosage: 5/325 MG AND 75/325 MG
     Route: 065
  8. NEXIUM [Suspect]
     Indication: DYSPEPSIA
     Route: 065
     Dates: start: 2005, end: 2007
  9. ZOLOFT [Suspect]
     Indication: BIPOLAR DISORDER
     Route: 065
     Dates: start: 2006, end: 2008

REACTIONS (3)
  - Exposure during pregnancy [Recovered/Resolved]
  - Premature labour [Recovered/Resolved]
  - Emotional disorder [Unknown]
